FAERS Safety Report 17872346 (Version 9)
Quarter: 2022Q3

REPORT INFORMATION
  Report Type: Report from Study
  Country: AR (occurrence: AR)
  Receive Date: 20200608
  Receipt Date: 20220828
  Transmission Date: 20221027
  Serious: Yes (Other)
  Sender: FDA-Public Use
  Company Number: NVSC2020AR130821

PATIENT
  Age: 66 Year
  Sex: Female

DRUGS (10)
  1. KISQALI [Suspect]
     Active Substance: RIBOCICLIB
     Indication: Breast cancer metastatic
     Dosage: 600 MG, QD (CAPSULE)
     Route: 048
     Dates: start: 20200102, end: 20201212
  2. KISQALI [Suspect]
     Active Substance: RIBOCICLIB
     Dosage: 400 MG, BID (TABLETS)
     Route: 048
     Dates: start: 20200102
  3. KISQALI [Suspect]
     Active Substance: RIBOCICLIB
     Dosage: 400 MG, QD
     Route: 065
  4. KISQALI [Suspect]
     Active Substance: RIBOCICLIB
     Dosage: 600 MG, QD (3 TABLETS)
     Route: 048
     Dates: end: 20200116
  5. KISQALI [Suspect]
     Active Substance: RIBOCICLIB
     Dosage: 400 MG, QD (2 TABLETS)
     Route: 048
     Dates: start: 20200130
  6. KISQALI [Suspect]
     Active Substance: RIBOCICLIB
     Dosage: 600 MG, QD (CAPSULE)
     Route: 048
     Dates: end: 20201212
  7. KISQALI [Suspect]
     Active Substance: RIBOCICLIB
     Dosage: 600 MG, QD (CAPSULE)
     Route: 048
     Dates: start: 20210107
  8. FULVESTRANT [Suspect]
     Active Substance: FULVESTRANT
     Indication: Product used for unknown indication
     Dosage: QMO (EVERY 28 DAYS)
     Route: 065
  9. FULVESTRANT [Suspect]
     Active Substance: FULVESTRANT
     Dosage: UNK (2 OF 250 MG)
     Route: 065
  10. XELODA [Concomitant]
     Active Substance: CAPECITABINE
     Indication: Product used for unknown indication
     Dosage: UNK
     Route: 065

REACTIONS (33)
  - Haemorrhage [Unknown]
  - Hepatic neoplasm [Recovering/Resolving]
  - Metastasis [Unknown]
  - Aortic arteriosclerosis [Unknown]
  - Macule [Not Recovered/Not Resolved]
  - Hiatus hernia [Not Recovered/Not Resolved]
  - Dermatitis [Not Recovered/Not Resolved]
  - Diarrhoea [Recovering/Resolving]
  - White blood cell count decreased [Not Recovered/Not Resolved]
  - Pruritus [Unknown]
  - Rash [Not Recovered/Not Resolved]
  - Dry skin [Not Recovered/Not Resolved]
  - Abdominal pain upper [Recovering/Resolving]
  - Nutritional condition abnormal [Unknown]
  - Flatulence [Unknown]
  - Depressed mood [Unknown]
  - Skin disorder [Not Recovered/Not Resolved]
  - Pneumonitis [Unknown]
  - Somnolence [Unknown]
  - Dyspepsia [Unknown]
  - Abdominal pain [Unknown]
  - Anosmia [Recovered/Resolved]
  - Hypertension [Unknown]
  - Fatigue [Unknown]
  - COVID-19 [Recovered/Resolved]
  - Tumour marker abnormal [Unknown]
  - Cough [Recovered/Resolved]
  - Pyrexia [Recovered/Resolved]
  - Oropharyngeal pain [Recovered/Resolved]
  - Inappropriate schedule of product administration [Unknown]
  - Malaise [Unknown]
  - Pain [Unknown]
  - Drug ineffective [Unknown]

NARRATIVE: CASE EVENT DATE: 20200701
